FAERS Safety Report 18046328 (Version 3)
Quarter: 2020Q3

REPORT INFORMATION
  Report Type: Spontaneous
  Country: US (occurrence: US)
  Receive Date: 20200720
  Receipt Date: 20200722
  Transmission Date: 20201103
  Serious: No
  Sender: FDA-Public Use
  Company Number: US-PFIZER INC-2020275182

PATIENT
  Age: 37 Year
  Sex: Male

DRUGS (1)
  1. DILANTIN [Suspect]
     Active Substance: PHENYTOIN
     Indication: SEIZURE
     Dosage: 400 MG, 2X/DAY (BID)

REACTIONS (2)
  - Anticonvulsant drug level decreased [Unknown]
  - Prescribed overdose [Unknown]
